FAERS Safety Report 5736759-0 (Version None)
Quarter: 2008Q2

REPORT INFORMATION
  Report Type: 
  Country: None (occurrence: None)
  Receive Date: 20080508
  Receipt Date: 20080428
  Transmission Date: 20081010
  Serious: Yes (Hospitalization)
  Sender: FDA-Public Use
  Company Number: 2008-176689-NL

PATIENT
  Age: 38 Year
  Sex: Female

DRUGS (8)
  1. FOLLITROPIN BETA [Suspect]
     Indication: OVARIAN DISORDER
     Dosage: SUBCUTANEOUS
     Route: 058
     Dates: start: 20070901, end: 20071101
  2. CHORIONIC GONADOTROPIN [Suspect]
     Indication: OVARIAN DISORDER
     Dosage: INTRAMUSCULAR
     Route: 030
     Dates: start: 20070901, end: 20070901
  3. CHORIONIC GONADOTROPIN [Suspect]
     Indication: OVARIAN DISORDER
     Dosage: INTRAMUSCULAR
     Route: 030
     Dates: start: 20071101, end: 20071101
  4. CLOMIPHENE CITRATE [Suspect]
     Indication: OVARIAN DISORDER
     Dosage: 1 DF ORAL
     Route: 048
     Dates: start: 20071101, end: 20071101
  5. UROFOLLITROPIN [Suspect]
     Indication: OVARIAN DISORDER
     Dosage: DF
     Dates: start: 20071101, end: 20071101
  6. DYDROGESTERONE TAB [Concomitant]
  7. TRETINOIN [Concomitant]
  8. MEFENAMIC ACID [Concomitant]

REACTIONS (7)
  - ALANINE AMINOTRANSFERASE INCREASED [None]
  - ARTHRALGIA [None]
  - ASPARTATE AMINOTRANSFERASE INCREASED [None]
  - GROIN PAIN [None]
  - MYALGIA [None]
  - NECK PAIN [None]
  - PARALYSIS [None]
